FAERS Safety Report 15917306 (Version 1)
Quarter: 2019Q1

REPORT INFORMATION
  Report Type: Spontaneous
  Country: US (occurrence: US)
  Receive Date: 20190205
  Receipt Date: 20190205
  Transmission Date: 20190417
  Serious: Yes (Hospitalization, Other)
  Sender: FDA-Public Use
  Company Number: US-AUROBINDO-AUR-APL-2019-004839

PATIENT

DRUGS (3)
  1. ASPIRIN. [Concomitant]
     Active Substance: ASPIRIN
     Indication: PRODUCT USED FOR UNKNOWN INDICATION
     Route: 065
  2. CLOPIDOGREL [Concomitant]
     Active Substance: CLOPIDOGREL BISULFATE
     Indication: PRODUCT USED FOR UNKNOWN INDICATION
     Route: 065
  3. SEVELAMER CARBONATE. [Suspect]
     Active Substance: SEVELAMER CARBONATE
     Indication: HYPERPHOSPHATAEMIA
     Dosage: 2400 MILLIGRAM, 3 TIMES A DAY FOR 2 YEARS
     Route: 048

REACTIONS (3)
  - Abdominal pain [Unknown]
  - Haematochezia [Recovered/Resolved]
  - Mucosal ulceration [Unknown]
